FAERS Safety Report 16462588 (Version 7)
Quarter: 2020Q3

REPORT INFORMATION
  Report Type: Spontaneous
  Country: PT (occurrence: PT)
  Receive Date: 20190621
  Receipt Date: 20200710
  Transmission Date: 20201102
  Serious: Yes (Hospitalization, Other)
  Sender: FDA-Public Use
  Company Number: PT-009507513-1906PRT004192

PATIENT
  Age: 70 Year
  Sex: Female

DRUGS (7)
  1. SERTRALINE HYDROCHLORIDE. [Concomitant]
     Active Substance: SERTRALINE HYDROCHLORIDE
     Indication: ANXIETY
  2. SERTRALINE HYDROCHLORIDE. [Concomitant]
     Active Substance: SERTRALINE HYDROCHLORIDE
     Indication: MAJOR DEPRESSION
     Dosage: 50 MG DAILY FOR MANY YEARS
  3. MIANSERIN HYDROCHLORIDE [Concomitant]
     Active Substance: MIANSERIN HYDROCHLORIDE
     Indication: ANXIETY
     Dosage: 30 MG DAILY FOR MANY YEARS
  4. ROPINIROLE. [Concomitant]
     Active Substance: ROPINIROLE
     Indication: PARKINSON^S DISEASE
     Dosage: 8 MG ONCE A DAY
  5. MIANSERIN HYDROCHLORIDE [Concomitant]
     Active Substance: MIANSERIN HYDROCHLORIDE
     Indication: MAJOR DEPRESSION
  6. SINEMET [Suspect]
     Active Substance: CARBIDOPA\LEVODOPA
     Indication: PARKINSON^S DISEASE
     Dosage: 25/250 MG FOUR TIMES PER DAY
     Route: 048
  7. SINEMET [Suspect]
     Active Substance: CARBIDOPA\LEVODOPA
     Dosage: (6 TIMES A DAY) EXTRA DOSES
     Route: 048

REACTIONS (4)
  - Dopamine dysregulation syndrome [Recovered/Resolved]
  - Extra dose administered [Unknown]
  - Intentional product misuse [Unknown]
  - Drug abuse [Unknown]
